FAERS Safety Report 22334470 (Version 2)
Quarter: 2023Q4

REPORT INFORMATION
  Report Type: Report from Study
  Country: US (occurrence: US)
  Receive Date: 20230517
  Receipt Date: 20231124
  Transmission Date: 20240110
  Serious: Yes (Hospitalization)
  Sender: FDA-Public Use
  Company Number: US-drreddys-SPO/USA/23/0163593

PATIENT
  Age: 6 Month
  Sex: Female
  Weight: 10.26 kg

DRUGS (4)
  1. SAPROPTERIN DIHYDROCHLORIDE [Suspect]
     Active Substance: SAPROPTERIN DIHYDROCHLORIDE
     Indication: Phenylketonuria
     Dosage: DISSOLVE THREE 100 MG POWDER PACKETS IN 10 ML OF WATER OR FORMULA. GIVE 8 ML (TOTAL DAILY DOSE OF 25
     Route: 048
  2. CEFDINIR [Concomitant]
     Active Substance: CEFDINIR
     Indication: Product used for unknown indication
     Dosage: 125 MG/5ML
  3. ALBUTEROL SULFATE [Concomitant]
     Active Substance: ALBUTEROL SULFATE
     Indication: Product used for unknown indication
     Dosage: 1.25MG/3ML
  4. TRIAMCINOLONE ACETONIDE [Concomitant]
     Active Substance: TRIAMCINOLONE ACETONIDE
     Indication: Product used for unknown indication

REACTIONS (3)
  - Respiratory syncytial virus infection [Unknown]
  - Ear infection [Not Recovered/Not Resolved]
  - Teething [Not Recovered/Not Resolved]
